FAERS Safety Report 4631148-4 (Version None)
Quarter: 2005Q2

REPORT INFORMATION
  Report Type: 
  Country: None (occurrence: None)
  Receive Date: 20050407
  Receipt Date: 20050407
  Transmission Date: 20051028
  Serious: No
  Sender: FDA-Public Use
  Company Number: None

PATIENT
  Sex: Female
  Weight: 108.3 kg

DRUGS (34)
  1. PRIMAQUINE [Suspect]
     Indication: PNEUMOCYSTIS JIROVECI PNEUMONIA
     Dosage: 30MG  QD  ORAL
     Route: 048
     Dates: start: 20050401, end: 20050404
  2. ERYTHROMYCIN [Concomitant]
  3. FLUCONAZOLE [Concomitant]
  4. FERROUS SULFATE TAB [Concomitant]
  5. AMIODARONE [Concomitant]
  6. DIGOXIN [Concomitant]
  7. DOCUSATE SODIUM [Concomitant]
  8. LANSOPRAZOLE [Concomitant]
  9. METOCLOPRAMIDE [Concomitant]
  10. HYDROCORTISONE [Concomitant]
  11. POTASSIUM CHLORIDE [Concomitant]
  12. VANCOMYCIN [Concomitant]
  13. CLINDAMYCIN [Concomitant]
  14. GATIFLOXACIN [Concomitant]
  15. COMBIVENT MDI [Concomitant]
  16. ATRACURIUM [Concomitant]
  17. FUROSEMIDE [Concomitant]
  18. MORPHINE SULFATE [Concomitant]
  19. LORAZEPAM [Concomitant]
  20. MIDAZOLAM HCL [Concomitant]
  21. ALBUMIN (HUMAN) [Concomitant]
  22. PHENYLEPHRINE [Concomitant]
  23. PROPOFOL [Concomitant]
  24. VITAMIN K [Concomitant]
  25. MEROPENEM [Concomitant]
  26. SULFAMETHOXAZOLE AND TRIMETHOPRIM [Concomitant]
  27. LINEZOLID [Concomitant]
  28. METHYLPREDNISOLONE [Concomitant]
  29. DOPAMINE [Concomitant]
  30. MAGNESIUM CITRATE [Concomitant]
  31. INSULIN [Concomitant]
  32. MAGNESIUM SULFATE [Concomitant]
  33. HETASTARCH 6% IN 0.9% SODIUM CHLORIDE IN PLASTIC CONTAINER [Concomitant]
  34. SODIUM BICARBONATE [Concomitant]

REACTIONS (2)
  - BLOOD METHAEMOGLOBIN PRESENT [None]
  - OXYGEN SATURATION DECREASED [None]
